FAERS Safety Report 18610462 (Version 1)
Quarter: 2020Q4

REPORT INFORMATION
  Report Type: Spontaneous
  Country: US (occurrence: US)
  Receive Date: 20201214
  Receipt Date: 20201214
  Transmission Date: 20210114
  Serious: No
  Sender: FDA-Public Use
  Company Number: US-CADILA HEALTHCARE LIMITED-US-ZYDUS-055352

PATIENT
  Age: 41 Year
  Sex: Male

DRUGS (3)
  1. RISPERIDONE 1 MILLIGRAM TABLET [Suspect]
     Active Substance: RISPERIDONE
     Indication: DEPRESSION
     Dosage: 1 MILLIGRAM, QD
     Route: 048
     Dates: start: 201911
  2. MIRTAZAPINE. [Concomitant]
     Active Substance: MIRTAZAPINE
     Indication: DEPRESSION
     Dosage: 30 MILLIGRAM
  3. RISPERIDONE 1 MILLIGRAM TABLET [Suspect]
     Active Substance: RISPERIDONE
     Indication: ANXIETY

REACTIONS (4)
  - Insomnia [Not Recovered/Not Resolved]
  - Asthenia [Not Recovered/Not Resolved]
  - Product use in unapproved indication [Not Recovered/Not Resolved]
  - Drug ineffective for unapproved indication [Not Recovered/Not Resolved]

NARRATIVE: CASE EVENT DATE: 201911
